FAERS Safety Report 7257361-8 (Version None)
Quarter: 2011Q1

REPORT INFORMATION
  Report Type: 
  Country: None (occurrence: None)
  Receive Date: 20110129
  Receipt Date: 20100803
  Transmission Date: 20110831
  Serious: No
  Sender: FDA-Public Use
  Company Number: US-ABBOTT-10P-163-0661301-00

PATIENT
  Age: 24 Year
  Sex: Female

DRUGS (9)
  1. PREDNISONE [Concomitant]
     Indication: PRODUCT USED FOR UNKNOWN INDICATION
     Route: 048
  2. CELEXA [Concomitant]
     Indication: ANXIETY
     Dates: start: 20100701
  3. ISOCORT [Concomitant]
     Indication: PRODUCT USED FOR UNKNOWN INDICATION
     Dates: start: 20050101
  4. IMURAN [Concomitant]
     Indication: PRODUCT USED FOR UNKNOWN INDICATION
  5. BENTYL [Concomitant]
     Indication: PAIN
  6. CELEXA [Concomitant]
     Indication: DEPRESSION
  7. VITAMIN D [Concomitant]
     Indication: PRODUCT USED FOR UNKNOWN INDICATION
  8. BIRTH CONTROL PILLS [Concomitant]
     Indication: PRODUCT USED FOR UNKNOWN INDICATION
  9. HUMIRA [Suspect]
     Indication: PRODUCT USED FOR UNKNOWN INDICATION
     Dates: start: 20100607

REACTIONS (2)
  - INJECTION SITE SWELLING [None]
  - INJECTION SITE ERYTHEMA [None]
